FAERS Safety Report 13290796 (Version 1)
Quarter: 2017Q1

REPORT INFORMATION
  Report Type: Spontaneous
  Country: US (occurrence: US)
  Receive Date: 20170303
  Receipt Date: 20170303
  Transmission Date: 20170428
  Serious: No
  Sender: FDA-Public Use
  Company Number: US-PFIZER INC-2017087904

PATIENT
  Age: 64 Year

DRUGS (2)
  1. AMBIEN [Concomitant]
     Active Substance: ZOLPIDEM TARTRATE
     Dosage: UNK
  2. LYRICA [Suspect]
     Active Substance: PREGABALIN
     Indication: SPINAL CORD INJURY
     Dosage: UNK

REACTIONS (13)
  - Weight increased [Unknown]
  - Dizziness postural [Unknown]
  - Constipation [Unknown]
  - Peripheral swelling [Unknown]
  - Limb discomfort [Unknown]
  - Dry mouth [Unknown]
  - Balance disorder [Unknown]
  - Head discomfort [Unknown]
  - Paraesthesia [Unknown]
  - Urine odour abnormal [Unknown]
  - Drug ineffective [Unknown]
  - Arthralgia [Unknown]
  - Dysuria [Unknown]
